FAERS Safety Report 4677036-9 (Version None)
Quarter: 2005Q2

REPORT INFORMATION
  Report Type: 
  Country: None (occurrence: None)
  Receive Date: 20050526
  Receipt Date: 20050324
  Transmission Date: 20051028
  Serious: Yes (Disabling)
  Sender: FDA-Public Use
  Company Number: WAES0503USA04449

PATIENT
  Age: 64 Year
  Sex: Male

DRUGS (3)
  1. VYTORIN [Suspect]
     Indication: BLOOD CHOLESTEROL INCREASED
     Dosage: 10-40 MG DAILY;PO
     Route: 048
     Dates: start: 20050127, end: 20050215
  2. TOPROL-XL [Concomitant]
  3. THERAPY UNSPECIFIED [Concomitant]

REACTIONS (1)
  - MYALGIA [None]
